FAERS Safety Report 7996973-0 (Version None)
Quarter: 2011Q4

REPORT INFORMATION
  Report Type: 
  Country: None (occurrence: None)
  Receive Date: 20111221
  Receipt Date: 20111209
  Transmission Date: 20120403
  Serious: No
  Sender: FDA-Public Use
  Company Number: PHHY2011JP105213

PATIENT
  Age: 74 Year
  Sex: Female

DRUGS (6)
  1. SEROQUEL [Suspect]
     Indication: SCHIZOAFFECTIVE DISORDER
     Dosage: 700 MG, UNK
  2. SEROQUEL [Suspect]
     Dosage: 25 MG, UNK
     Route: 048
  3. SEROQUEL [Suspect]
     Dosage: 750 MG, UNK
  4. CARBAMAZEPINE [Suspect]
     Indication: SCHIZOAFFECTIVE DISORDER
     Dosage: 400 MG, UNK
     Route: 048
  5. LITHIUM CARBONATE [Concomitant]
     Indication: SCHIZOAFFECTIVE DISORDER
     Dosage: 700 -800 MG/DAY
     Route: 048
  6. LITHIUM CARBONATE [Concomitant]
     Dosage: 800 MG, UNK

REACTIONS (1)
  - DRUG INEFFECTIVE [None]
